FAERS Safety Report 6032111-1 (Version None)
Quarter: 2009Q1

REPORT INFORMATION
  Report Type: 
  Country: None (occurrence: None)
  Receive Date: 20090107
  Receipt Date: 20081223
  Transmission Date: 20090719
  Serious: Yes (Hospitalization)
  Sender: FDA-Public Use
  Company Number: 2009BI000206

PATIENT
  Age: 49 Year
  Sex: Male

DRUGS (1)
  1. ZEVALIN [Suspect]
     Indication: MANTLE CELL LYMPHOMA

REACTIONS (1)
  - SURGERY [None]
